FAERS Safety Report 4968302-8 (Version None)
Quarter: 2006Q2

REPORT INFORMATION
  Report Type: 
  Country: None (occurrence: None)
  Receive Date: 20060405
  Receipt Date: 20060324
  Transmission Date: 20061013
  Serious: Yes (Life-Threatening, Hospitalization)
  Sender: FDA-Public Use
  Company Number: 430003M06FRA

PATIENT
  Age: 70 Year
  Sex: Male

DRUGS (17)
  1. NOVANTRONE [Suspect]
     Indication: CHRONIC LYMPHOCYTIC LEUKAEMIA
     Dosage: SEE IMAGE, INTRAVENOUS
     Route: 042
     Dates: start: 20050129, end: 20050129
  2. NOVANTRONE [Suspect]
     Indication: CHRONIC LYMPHOCYTIC LEUKAEMIA
     Dosage: SEE IMAGE, INTRAVENOUS
     Route: 042
     Dates: start: 20050317, end: 20050317
  3. NOVANTRONE [Suspect]
     Indication: CHRONIC LYMPHOCYTIC LEUKAEMIA
     Dosage: SEE IMAGE, INTRAVENOUS
     Route: 042
     Dates: start: 20050424, end: 20050424
  4. NOVANTRONE [Suspect]
     Indication: CHRONIC LYMPHOCYTIC LEUKAEMIA
     Dosage: SEE IMAGE, INTRAVENOUS
     Route: 042
     Dates: start: 20050523, end: 20050523
  5. NOVANTRONE [Suspect]
     Indication: CHRONIC LYMPHOCYTIC LEUKAEMIA
     Dosage: SEE IMAGE, INTRAVENOUS
     Route: 042
     Dates: start: 20050703, end: 20050703
  6. FLUDARABINE PHOSPHATE [Suspect]
     Indication: CHRONIC LYMPHOCYTIC LEUKAEMIA
     Dosage: SEE IMAGE, INTRAVENOUS
     Route: 042
     Dates: start: 20040601, end: 20041001
  7. FLUDARABINE PHOSPHATE [Suspect]
     Indication: CHRONIC LYMPHOCYTIC LEUKAEMIA
     Dosage: SEE IMAGE, INTRAVENOUS
     Route: 042
     Dates: start: 20040901, end: 20041001
  8. FLUDARABINE PHOSPHATE [Suspect]
     Indication: CHRONIC LYMPHOCYTIC LEUKAEMIA
     Dosage: SEE IMAGE, INTRAVENOUS
     Route: 042
     Dates: start: 20050129, end: 20050131
  9. FLUDARABINE PHOSPHATE [Suspect]
     Indication: CHRONIC LYMPHOCYTIC LEUKAEMIA
     Dosage: SEE IMAGE, INTRAVENOUS
     Route: 042
     Dates: start: 20050317, end: 20050318
  10. FLUDARABINE PHOSPHATE [Suspect]
     Indication: CHRONIC LYMPHOCYTIC LEUKAEMIA
     Dosage: SEE IMAGE, INTRAVENOUS
     Route: 042
     Dates: start: 20050424, end: 20050425
  11. FLUDARABINE PHOSPHATE [Suspect]
     Indication: CHRONIC LYMPHOCYTIC LEUKAEMIA
     Dosage: SEE IMAGE, INTRAVENOUS
     Route: 042
     Dates: start: 20050523, end: 20050524
  12. FLUDARABINE PHOSPHATE [Suspect]
     Indication: CHRONIC LYMPHOCYTIC LEUKAEMIA
     Dosage: SEE IMAGE, INTRAVENOUS
     Route: 042
     Dates: start: 20050703, end: 20050703
  13. RITUXIMAB [Suspect]
     Indication: CHRONIC LYMPHOCYTIC LEUKAEMIA
     Dosage: 700 MG, 1 IN 1 DAYS, INTRAVENOUS
     Route: 042
     Dates: start: 20050128, end: 20050128
  14. RITUXIMAB [Suspect]
     Indication: CHRONIC LYMPHOCYTIC LEUKAEMIA
     Dosage: 700 MG, 1 IN 1 DAYS, INTRAVENOUS
     Route: 042
     Dates: start: 20050316, end: 20050316
  15. RITUXIMAB [Suspect]
     Indication: CHRONIC LYMPHOCYTIC LEUKAEMIA
     Dosage: 700 MG, 1 IN 1 DAYS, INTRAVENOUS
     Route: 042
     Dates: start: 20050423, end: 20050423
  16. RITUXIMAB [Suspect]
     Indication: CHRONIC LYMPHOCYTIC LEUKAEMIA
     Dosage: 700 MG, 1 IN 1 DAYS, INTRAVENOUS
     Route: 042
     Dates: start: 20050522, end: 20050522
  17. RITUXIMAB [Suspect]
     Indication: CHRONIC LYMPHOCYTIC LEUKAEMIA
     Dosage: 700 MG, 1 IN 1 DAYS, INTRAVENOUS
     Route: 042
     Dates: start: 20050702, end: 20050702

REACTIONS (18)
  - BASAL CELL CARCINOMA [None]
  - BLOOD CREATININE INCREASED [None]
  - DEMENTIA [None]
  - DISORIENTATION [None]
  - EPIDIDYMITIS [None]
  - GENERAL PHYSICAL HEALTH DETERIORATION [None]
  - HEPATOSPLENOMEGALY [None]
  - HERPES ZOSTER [None]
  - HYPOKINESIA [None]
  - NEUTROPENIA [None]
  - ORCHITIS [None]
  - PROGRESSIVE MULTIFOCAL LEUKOENCEPHALOPATHY [None]
  - PROSTATITIS [None]
  - PSEUDOMONAS INFECTION [None]
  - SOMNOLENCE [None]
  - SQUAMOUS CELL CARCINOMA [None]
  - THROMBOCYTOPENIA [None]
  - URINARY TRACT INFECTION PSEUDOMONAL [None]
